FAERS Safety Report 6056246-2 (Version None)
Quarter: 2009Q1

REPORT INFORMATION
  Report Type: 
  Country: None (occurrence: None)
  Receive Date: 20090126
  Receipt Date: 20090126
  Transmission Date: 20090719
  Serious: Yes (Hospitalization)
  Sender: FDA-Public Use
  Company Number: None

PATIENT
  Age: 62 Year
  Sex: Male

DRUGS (2)
  1. LORAZEPAM [Suspect]
     Dosage: 2 MG ONCE PO
     Route: 048
     Dates: start: 20090121, end: 20090121
  2. CLONIDINE HCL [Suspect]
     Dosage: 0.1 MG ONCE PO
     Route: 048
     Dates: start: 20090121, end: 20090121

REACTIONS (6)
  - DYSSTASIA [None]
  - GAIT DISTURBANCE [None]
  - HEADACHE [None]
  - HYPERTENSION [None]
  - SEDATION [None]
  - SOMNOLENCE [None]
